FAERS Safety Report 11983303 (Version 13)
Quarter: 2019Q3

REPORT INFORMATION
  Report Type: Spontaneous
  Country: US (occurrence: US)
  Receive Date: 20160201
  Receipt Date: 20190826
  Transmission Date: 20191004
  Serious: Yes (Other)
  Sender: FDA-Public Use
  Company Number: US-PFIZER INC-2015433089

PATIENT
  Age: 15 Year
  Sex: Female
  Weight: 52 kg

DRUGS (19)
  1. FLEXERIL [Concomitant]
     Active Substance: CYCLOBENZAPRINE HYDROCHLORIDE
     Indication: MUSCLE SPASMS
     Dosage: 10 MG, 3X/DAY (AS NEEDED)
     Route: 048
  2. METHYLPREDNISOLONE. [Concomitant]
     Active Substance: METHYLPREDNISOLONE
     Indication: CERVICAL VERTEBRAL FRACTURE
     Dosage: 4 MG, UNK
     Route: 048
  3. DEPO-PROVERA [Suspect]
     Active Substance: MEDROXYPROGESTERONE ACETATE
     Indication: CONTRACEPTION
     Dosage: UNK
     Dates: start: 2010, end: 201212
  4. PODOFILOX. [Concomitant]
     Active Substance: PODOFILOX
     Dosage: UNK, AS NEEDED, EVERY THREE DAYS
  5. DIFLUCAN [Concomitant]
     Active Substance: FLUCONAZOLE
     Dosage: 1 DF, DAILY (FOR 3 DAYS)
     Route: 048
  6. LESSINA [Concomitant]
     Active Substance: ETHINYL ESTRADIOL\LEVONORGESTREL
     Dosage: 1 DF, DAILY (STRENGTH: 0.1 MG- 20 MCG)
     Route: 048
  7. FLUTICASONE PROPIONATE. [Concomitant]
     Active Substance: FLUTICASONE PROPIONATE
     Dosage: 1- 2 SPRAY EACH NARE, 2X/DAY (FOR 30 DAYS)
     Route: 045
  8. CIPRO [Concomitant]
     Active Substance: CIPROFLOXACIN HYDROCHLORIDE
     Dosage: 1 DF, 2X/DAY (FOR 7 DAYS)
     Route: 048
  9. IBUPROFEN. [Concomitant]
     Active Substance: IBUPROFEN
     Dosage: 1 DF, 3X/DAY (AS PRESCRIBED)
     Route: 048
  10. ACIDOPHILUS [Concomitant]
     Active Substance: LACTOBACILLUS ACIDOPHILUS
     Dosage: 1 DF, 2X/DAY (30 DAYS)
     Route: 048
  11. VITAMIN D2 [Concomitant]
     Active Substance: ERGOCALCIFEROL
     Dosage: 1 DF, WEEKLY (FOR 30 DAYS)
     Route: 048
  12. TRIAMCINOLONE ACETONIDE. [Concomitant]
     Active Substance: TRIAMCINOLONE ACETONIDE
     Dosage: UNK UNK, AS NEEDED (FOR 30 DAYS)
  13. CYCLOBENZAPRINE HCL [Concomitant]
     Active Substance: CYCLOBENZAPRINE HYDROCHLORIDE
     Indication: CERVICAL VERTEBRAL FRACTURE
     Dosage: UNK, 3X/DAY, AS REQUIRED
     Route: 048
  14. MOTRIN [Concomitant]
     Active Substance: IBUPROFEN
     Indication: PAIN
     Dosage: 600 MG, 3X/DAY (AS NEEDED) WITH FOOD
     Route: 048
  15. KETOCONAZOLE. [Concomitant]
     Active Substance: KETOCONAZOLE
     Dosage: UNK UNK, 2X/DAY (FOR 2 WEEKS)
  16. DICLOFENAC SODIUM. [Concomitant]
     Active Substance: DICLOFENAC SODIUM
     Indication: CERVICAL VERTEBRAL FRACTURE
     Dosage: 75 MG, 2X/DAY
     Route: 048
  17. BACTRIM DS [Concomitant]
     Active Substance: SULFAMETHOXAZOLE\TRIMETHOPRIM
     Indication: CANDIDA INFECTION
     Dosage: 800 MG-160 MG, 2X/DAY
     Route: 048
  18. CALCIUM+D3 [Concomitant]
     Dosage: 1 DF (600- 200 MG), 1X/DAY (FOR 30 DAYS)
     Route: 048
  19. AZITHROMYCIN ANHYDROUS. [Concomitant]
     Active Substance: AZITHROMYCIN ANHYDROUS
     Dosage: 2 DF, UNK
     Route: 048
     Dates: start: 20190422

REACTIONS (12)
  - Chest discomfort [Unknown]
  - Dyspnoea [Unknown]
  - Scoliosis [Unknown]
  - Cervical vertebral fracture [Unknown]
  - Osteoporosis [Unknown]
  - Depression [Unknown]
  - Amnesia [Unknown]
  - Back pain [Unknown]
  - Chest pain [Unknown]
  - Insomnia [Unknown]
  - Ligament sprain [Unknown]
  - Ankle fracture [Unknown]

NARRATIVE: CASE EVENT DATE: 2011
